FAERS Safety Report 8443130-X (Version None)
Quarter: 2012Q2

REPORT INFORMATION
  Report Type: 
  Country: None (occurrence: None)
  Receive Date: 20120615
  Receipt Date: 20120528
  Transmission Date: 20120825
  Serious: Yes (Life-Threatening)
  Sender: FDA-Public Use
  Company Number: RO-MERCK-1206USA02214

PATIENT
  Age: 60 Year
  Sex: Female

DRUGS (2)
  1. CALCIUM LACTATE [Concomitant]
     Indication: OSTEOPOROSIS
     Dosage: ^500^ EVERY OTHER DAY
     Route: 065
     Dates: start: 20120410, end: 20120503
  2. FOSAMAX PLUS D [Suspect]
     Indication: OSTEOPOROSIS
     Route: 048
     Dates: start: 20120410, end: 20120503

REACTIONS (6)
  - MELAENA [None]
  - ALOPECIA [None]
  - MUSCLE SPASMS [None]
  - ANXIETY [None]
  - BONE PAIN [None]
  - CHEST PAIN [None]
